FAERS Safety Report 25742729 (Version 3)
Quarter: 2025Q4

REPORT INFORMATION
  Report Type: Report from Study
  Country: US (occurrence: US)
  Receive Date: 20250830
  Receipt Date: 20251022
  Transmission Date: 20260118
  Serious: No
  Sender: BRISTOL-MYERS SQUIBB COMPANY
  Company Number: US-BRISTOL-MYERS SQUIBB COMPANY-2025-120124

PATIENT
  Age: 51 Year
  Sex: Female

DRUGS (2)
  1. ORENCIA [Suspect]
     Active Substance: ABATACEPT
     Indication: Rheumatoid arthritis
     Dates: start: 202506
  2. ORENCIA [Suspect]
     Active Substance: ABATACEPT
     Dates: start: 202508

REACTIONS (14)
  - Insomnia [Unknown]
  - Chills [Unknown]
  - Pain [Unknown]
  - Glossodynia [Unknown]
  - Gingival discomfort [Unknown]
  - Erythema [Unknown]
  - Vitiligo [Unknown]
  - Muscle spasms [Unknown]
  - Joint stiffness [Unknown]
  - Haemorrhage [Unknown]
  - Contusion [Unknown]
  - Gait disturbance [Unknown]
  - Arthralgia [Unknown]
  - Headache [Unknown]
